FAERS Safety Report 9839771 (Version 3)
Quarter: 2014Q2

REPORT INFORMATION
  Report Type: Spontaneous
  Country: US (occurrence: US)
  Receive Date: 20140124
  Receipt Date: 20140414
  Transmission Date: 20141212
  Serious: No
  Sender: FDA-Public Use
  Company Number: US-BIOGENIDEC-2014BI006140

PATIENT
  Age: 70 Year
  Sex: Female

DRUGS (24)
  1. TECFIDERA [Suspect]
     Indication: MULTIPLE SCLEROSIS
     Route: 048
  2. TECFIDERA [Suspect]
     Indication: MULTIPLE SCLEROSIS
     Route: 048
  3. ALIGN [Concomitant]
  4. AMLODIPINE BESYLATE [Concomitant]
  5. ASPIR-LOW [Concomitant]
  6. BENICAR [Concomitant]
  7. CALCIUM/MAGNESIUM/ZINC [Concomitant]
  8. CHLORTHALIDONE [Concomitant]
  9. EVISTA [Concomitant]
  10. FLONASE [Concomitant]
  11. FOLIC ACID [Concomitant]
  12. LEXAPRO [Concomitant]
  13. LOVAZA [Concomitant]
  14. MAGNESIUM [Concomitant]
  15. MIRALAX [Concomitant]
  16. NEXIUM [Concomitant]
     Route: 042
  17. PREMARIN [Concomitant]
  18. QVAR [Concomitant]
  19. SINGULAIR [Concomitant]
  20. SPIRONOLACTONE [Concomitant]
  21. SYNTHROID [Concomitant]
  22. TYLENOL ARTHRITIS PAIN [Concomitant]
  23. VITAMIN B COMPLEX [Concomitant]
  24. VITAMIN C ER [Concomitant]

REACTIONS (6)
  - Headache [Unknown]
  - Depression [Unknown]
  - Spinal pain [Unknown]
  - Eye pruritus [Unknown]
  - Flushing [Unknown]
  - Pruritus [Unknown]
